FAERS Safety Report 6463233-9 (Version None)
Quarter: 2009Q4

REPORT INFORMATION
  Report Type: 
  Country: None (occurrence: None)
  Receive Date: 20091130
  Receipt Date: 20090520
  Transmission Date: 20100525
  Serious: No
  Sender: FDA-Public Use
  Company Number: US-AMGEN-KDL266598

PATIENT
  Sex: Female

DRUGS (1)
  1. ENBREL [Suspect]
     Indication: PSORIASIS
     Route: 058
     Dates: start: 20080207, end: 20090410

REACTIONS (6)
  - COUGH [None]
  - FATIGUE [None]
  - LYMPHADENOPATHY [None]
  - PAIN [None]
  - PYREXIA [None]
  - THROAT IRRITATION [None]
